FAERS Safety Report 10132829 (Version 1)
Quarter: 2014Q2

REPORT INFORMATION
  Report Type: Spontaneous
  Country: US (occurrence: US)
  Receive Date: 20140428
  Receipt Date: 20140428
  Transmission Date: 20141212
  Serious: Yes (Other)
  Sender: FDA-Public Use
  Company Number: US-SA-2014SA052783

PATIENT
  Age: 60 Year
  Sex: Male

DRUGS (1)
  1. ZOLPIDEM TARTRATE EXTENDED RELEASE - WINTHROP [Suspect]
     Indication: PRODUCT USED FOR UNKNOWN INDICATION
     Dosage: 12.5 MG 2 AT NIGHT
     Route: 048

REACTIONS (6)
  - Cardiac disorder [Unknown]
  - Depression [Unknown]
  - Memory impairment [Unknown]
  - Therapeutic response decreased [Unknown]
  - Overdose [Unknown]
  - Wrong technique in drug usage process [Unknown]
